FAERS Safety Report 20602931 (Version 1)
Quarter: 2022Q1

REPORT INFORMATION
  Report Type: Spontaneous
  Country: US (occurrence: US)
  Receive Date: 20220316
  Receipt Date: 20220316
  Transmission Date: 20220423
  Serious: No
  Sender: FDA-Public Use
  Company Number: US-PFIZER INC-202200282963

PATIENT
  Age: 65 Year
  Sex: Male

DRUGS (1)
  1. SIROLIMUS [Suspect]
     Active Substance: SIROLIMUS
     Indication: Heart transplant
     Dosage: 0.5 MG, DAILY
     Route: 048

REACTIONS (2)
  - Drug level increased [Unknown]
  - Off label use [Unknown]
